FAERS Safety Report 17861011 (Version 1)
Quarter: 2020Q2

REPORT INFORMATION
  Report Type: Spontaneous
  Country: US (occurrence: US)
  Receive Date: 20200604
  Receipt Date: 20200604
  Transmission Date: 20200714
  Serious: Yes (Death)
  Sender: FDA-Public Use
  Company Number: None

PATIENT
  Age: 70 Year
  Sex: Female
  Weight: 108 kg

DRUGS (1)
  1. TOCILIZUMAB. [Suspect]
     Active Substance: TOCILIZUMAB
     Indication: COVID-19
     Dosage: ?          OTHER FREQUENCY:ONCE;?
     Route: 042
     Dates: start: 20200523, end: 20200523

REACTIONS (5)
  - Candida infection [None]
  - Fungal infection [None]
  - Immunosuppression [None]
  - Blood culture positive [None]
  - Aspergillus infection [None]

NARRATIVE: CASE EVENT DATE: 20200525
